FAERS Safety Report 7607601-8 (Version None)
Quarter: 2011Q3

REPORT INFORMATION
  Report Type: 
  Country: None (occurrence: None)
  Receive Date: 20110713
  Receipt Date: 20110302
  Transmission Date: 20111222
  Serious: Yes (Other)
  Sender: FDA-Public Use
  Company Number: PHHY2010JP83434

PATIENT
  Sex: Male

DRUGS (12)
  1. SUNRYTHM [Suspect]
     Dosage: 50 MG, QD
     Route: 048
     Dates: start: 20100710, end: 20100730
  2. TASIGNA [Suspect]
     Indication: CHRONIC MYELOID LEUKAEMIA
     Dosage: 400 MG, QD
     Route: 048
     Dates: start: 20100625, end: 20100813
  3. ALLOPURINOL [Concomitant]
     Dosage: 100 MG, UNK
     Route: 048
     Dates: start: 20100618, end: 20100730
  4. TAMSULOSIN HCL [Concomitant]
     Dosage: 0.2 MG, UNK
     Route: 048
     Dates: start: 19991029
  5. LENDORMIN [Concomitant]
     Dosage: 1 DF, UNK
     Route: 048
     Dates: start: 20061208
  6. LASIX [Concomitant]
     Dosage: 20 MG, UNK
     Route: 048
     Dates: start: 20100702, end: 20100716
  7. EVIPROSTAT [Concomitant]
     Dosage: 2 DF, UNK
     Route: 048
     Dates: start: 20020329
  8. PURSENNID [Concomitant]
     Dosage: 1 DF, UNK
     Route: 048
     Dates: start: 20100702, end: 20100812
  9. BUFFERIN [Concomitant]
     Dosage: 1 DF, UNK
     Route: 048
     Dates: start: 20040910
  10. TASIGNA [Suspect]
     Dosage: 400 MG, QD
     Route: 048
     Dates: start: 20100910
  11. AMLODIPINE [Concomitant]
     Dosage: 2.5 MG, UNK
     Route: 048
     Dates: start: 20100625, end: 20100730
  12. VERAPAMIL HCL [Concomitant]
     Dosage: 2 DF, UNK
     Route: 048
     Dates: start: 20100710

REACTIONS (2)
  - BLOOD CREATININE INCREASED [None]
  - ANAEMIA [None]
